FAERS Safety Report 17466455 (Version 2)
Quarter: 2025Q3

REPORT INFORMATION
  Report Type: Spontaneous
  Country: EU (occurrence: EU)
  Receive Date: 20200227
  Receipt Date: 20250806
  Transmission Date: 20251021
  Serious: Yes (Other)
  Sender: AUROBINDO
  Company Number: EU-002147023-NVSC2020CZ031629

PATIENT
  Age: 60 Year
  Sex: Male

DRUGS (5)
  1. FUROSEMIDE [Suspect]
     Active Substance: FUROSEMIDE
     Indication: Cardiac failure chronic
     Route: 065
     Dates: start: 201811
  2. NEBIVOLOL [Suspect]
     Active Substance: NEBIVOLOL
     Indication: Cardiac failure chronic
     Route: 065
     Dates: start: 201811
  3. VILDAGLIPTIN [Suspect]
     Active Substance: VILDAGLIPTIN
     Indication: Cardiac failure chronic
     Route: 065
     Dates: start: 201811
  4. TELMISARTAN [Suspect]
     Active Substance: TELMISARTAN
     Indication: Cardiac failure chronic
     Route: 065
     Dates: start: 201811
  5. VALSARTAN [Suspect]
     Active Substance: VALSARTAN
     Indication: Cardiac failure chronic
     Route: 065

REACTIONS (4)
  - Heart failure with reduced ejection fraction [Unknown]
  - Dyspnoea [Recovering/Resolving]
  - Tachycardia [Not Recovered/Not Resolved]
  - Product use in unapproved indication [Unknown]

NARRATIVE: CASE EVENT DATE: 20180101
